FAERS Safety Report 10457724 (Version 1)
Quarter: 2014Q3

REPORT INFORMATION
  Report Type: Spontaneous
  Country: BR (occurrence: BR)
  Receive Date: 20140916
  Receipt Date: 20140916
  Transmission Date: 20150326
  Serious: Yes (Hospitalization)
  Sender: FDA-Public Use
  Company Number: BR-B.I. PHARMACEUTICALS,INC./RIDGEFIELD-2014-BI-42695BR

PATIENT
  Age: 71 Year
  Sex: Male
  Weight: 61 kg

DRUGS (4)
  1. SECOTEX [Suspect]
     Active Substance: TAMSULOSIN
     Indication: PROSTATIC DISORDER
     Route: 048
     Dates: start: 20140826
  2. CIPROFLUXACINO [Concomitant]
     Indication: ANTIBIOTIC THERAPY
     Route: 048
     Dates: start: 201406
  3. PROFENIGEN [Concomitant]
     Indication: ANTIINFLAMMATORY THERAPY
     Route: 048
     Dates: start: 20140902
  4. PROFENIGEN [Concomitant]
     Indication: ANALGESIC THERAPY

REACTIONS (3)
  - Ejaculation disorder [Recovered/Resolved]
  - Urethral obstruction [Recovered/Resolved]
  - Retrograde ejaculation [Recovered/Resolved]

NARRATIVE: CASE EVENT DATE: 20140829
